FAERS Safety Report 23779761 (Version 2)
Quarter: 2024Q2

REPORT INFORMATION
  Report Type: Report from Study
  Country: CA (occurrence: CA)
  Receive Date: 20240424
  Receipt Date: 20240527
  Transmission Date: 20240716
  Serious: Yes (Hospitalization, Other)
  Sender: FDA-Public Use
  Company Number: CA-SANDOZ-SDZ2024CA028019

PATIENT
  Sex: Female
  Weight: 77.27 kg

DRUGS (4)
  1. HYRIMOZ [Suspect]
     Active Substance: ADALIMUMAB-ADAZ
     Dosage: 40 MG, Q2W , 160MG WK 0, 80MG WK2 AND 40MG EVERY OTHER WEEK (WK 4);EVERY TWO WEEKS
     Route: 058
  2. HYRIMOZ [Suspect]
     Active Substance: ADALIMUMAB-ADAZ
     Indication: Crohn^s disease
     Dosage: 40 MG, Q2W 160MG WK 0, 80MG WK2 AND 40MG EVERY OTHER WEEK (WK 4)
     Route: 058
     Dates: start: 20240201
  3. HYRIMOZ [Suspect]
     Active Substance: ADALIMUMAB-ADAZ
     Dosage: 160MG WK 0, 80MG WK2 AND 40MG EVERY OTHER WEEK (WK 4);EVERY TWO WEEKS
     Route: 065
  4. TYLENOL [Concomitant]
     Active Substance: ACETAMINOPHEN
     Indication: Arthritis
     Dosage: UNK
     Route: 065
     Dates: start: 20240229

REACTIONS (13)
  - Haemoglobin decreased [Unknown]
  - Gastrointestinal disorder [Unknown]
  - Skin disorder [Unknown]
  - Taste disorder [Unknown]
  - Early satiety [Unknown]
  - Blood glucose fluctuation [Unknown]
  - Increased appetite [Unknown]
  - Decreased appetite [Unknown]
  - Dizziness [Unknown]
  - Pain [Unknown]
  - Fatigue [Unknown]
  - Night sweats [Unknown]
  - Arthralgia [Unknown]
